FAERS Safety Report 8392917-0 (Version None)
Quarter: 2012Q2

REPORT INFORMATION
  Report Type: 
  Country: None (occurrence: None)
  Receive Date: 20120529
  Receipt Date: 20120522
  Transmission Date: 20120825
  Serious: Yes (Other)
  Sender: FDA-Public Use
  Company Number: BR-ABBOTT-12P-020-0937847-00

PATIENT
  Sex: Female

DRUGS (2)
  1. HUMIRA [Suspect]
     Indication: PRODUCT USED FOR UNKNOWN INDICATION
  2. ALITRAQ [Concomitant]
     Indication: MEDICAL DIET
     Route: 048

REACTIONS (6)
  - RESECTION OF RECTUM [None]
  - GASTRIC ULCER [None]
  - ULCER [None]
  - COLECTOMY [None]
  - SEPTIC SHOCK [None]
  - APHAGIA [None]
